FAERS Safety Report 5007274-7 (Version None)
Quarter: 2006Q2

REPORT INFORMATION
  Report Type: 
  Country: None (occurrence: None)
  Receive Date: 20060517
  Receipt Date: 20060508
  Transmission Date: 20061013
  Serious: No
  Sender: FDA-Public Use
  Company Number: TPA2006A00778

PATIENT
  Age: 69 Year
  Sex: Female
  Weight: 108.8633 kg

DRUGS (6)
  1. ACTOS [Suspect]
     Indication: DIABETES MELLITUS NON-INSULIN-DEPENDENT
     Dosage: 30 MG, 1 IN 1 D, PER ORAL
     Route: 048
     Dates: start: 20060426
  2. GLUCOTROL [Concomitant]
  3. METFORMIN [Concomitant]
  4. LOTREL [Concomitant]
  5. DIURETIC (DIURETICS) [Concomitant]
  6. LANTUS [Concomitant]

REACTIONS (3)
  - POOR QUALITY DRUG ADMINISTERED [None]
  - PRURITUS [None]
  - SWELLING FACE [None]
